FAERS Safety Report 11881831 (Version 1)
Quarter: 2015Q4

REPORT INFORMATION
  Report Type: Spontaneous
  Country: US (occurrence: US)
  Receive Date: 20151231
  Receipt Date: 20151231
  Transmission Date: 20160305
  Serious: Yes (Other)
  Sender: FDA-Public Use
  Company Number: US-GLAXOSMITHKLINE-US2015GSK183134

PATIENT
  Sex: Female

DRUGS (1)
  1. TANZEUM [Suspect]
     Active Substance: ALBIGLUTIDE
     Indication: TYPE 2 DIABETES MELLITUS
     Dosage: 30 MG, WE
     Route: 042
     Dates: start: 2015

REACTIONS (7)
  - Device use error [Unknown]
  - Weight increased [Unknown]
  - Blood glucose decreased [Unknown]
  - Dysphagia [Unknown]
  - Diverticulitis [Unknown]
  - Hypohidrosis [Unknown]
  - Dehydration [Unknown]

NARRATIVE: CASE EVENT DATE: 2015
